FAERS Safety Report 15540852 (Version 1)
Quarter: 2018Q4

REPORT INFORMATION
  Report Type: Spontaneous
  Country: US (occurrence: US)
  Receive Date: 20181023
  Receipt Date: 20181023
  Transmission Date: 20190205
  Serious: Yes (Hospitalization, Other)
  Sender: FDA-Public Use
  Company Number: US-IBIGEN-2018.05031

PATIENT
  Age: 57 Year
  Sex: Female

DRUGS (6)
  1. GENTAMICIN. [Suspect]
     Active Substance: GENTAMICIN
     Indication: DEVICE RELATED INFECTION
     Dosage: ANTIBIOTIC-IMPREGNATED CEMENT SPACER
  2. UNK [Suspect]
     Active Substance: UNSPECIFIED INGREDIENT
     Dosage: 3.375 G, INFUSION
     Route: 042
  3. IBUPROFEN. [Suspect]
     Active Substance: IBUPROFEN
     Indication: PAIN
     Dosage: TOTAL OF 3 DOSES OF IBUPROFEN 800 MG EVERY 8 HOURS AS NEEDED ; AS NECESSARY??????
  4. VANCOMYCIN [Suspect]
     Active Substance: VANCOMYCIN
     Indication: DEVICE RELATED INFECTION
     Dosage: ANTIBIOTIC-IMPREGNATED CEMENT SPACER
  5. TOBRAMYCIN. [Suspect]
     Active Substance: TOBRAMYCIN
     Indication: DEVICE RELATED INFECTION
     Dosage: ANTIBIOTIC-IMPREGNATED CEMENT SPACER
  6. VANCOMYCIN [Suspect]
     Active Substance: VANCOMYCIN
     Indication: DEVICE RELATED INFECTION
     Dosage: DOSED FOR GOAL TROUGH 15 TO 20 MG/L (THROUGH DAY 20) ()
     Route: 042

REACTIONS (3)
  - Acute kidney injury [Recovered/Resolved]
  - Nephropathy toxic [Recovered/Resolved]
  - Renal tubular necrosis [Recovered/Resolved]
